FAERS Safety Report 18493056 (Version 1)
Quarter: 2020Q4

REPORT INFORMATION
  Report Type: Spontaneous
  Country: HU (occurrence: HU)
  Receive Date: 20201111
  Receipt Date: 20201111
  Transmission Date: 20210114
  Serious: Yes (Hospitalization, Other)
  Sender: FDA-Public Use
  Company Number: HU-JNJFOC-20201106468

PATIENT
  Age: 39 Year
  Sex: Female

DRUGS (3)
  1. STAYVEER [Suspect]
     Active Substance: BOSENTAN
     Indication: SKIN ULCER
     Route: 048
     Dates: start: 201406
  2. ALPROSTADIL. [Concomitant]
     Active Substance: ALPROSTADIL
  3. SILDENAFIL. [Concomitant]
     Active Substance: SILDENAFIL

REACTIONS (3)
  - Respiratory disorder [Unknown]
  - Systemic scleroderma [Unknown]
  - Wound [Unknown]
